FAERS Safety Report 20710094 (Version 2)
Quarter: 2022Q2

REPORT INFORMATION
  Report Type: Spontaneous
  Country: US (occurrence: US)
  Receive Date: 20220414
  Receipt Date: 20220515
  Transmission Date: 20220720
  Serious: No
  Sender: FDA-Public Use
  Company Number: US-AMGEN-USASP2022060045

PATIENT
  Sex: Female

DRUGS (3)
  1. AVSOLA [Suspect]
     Active Substance: INFLIXIMAB-AXXQ
     Indication: Crohn^s disease
     Dosage: 300 MILLIGRAM, EVERY EIGHT WEEKS
     Route: 065
     Dates: start: 20210226
  2. AVSOLA [Suspect]
     Active Substance: INFLIXIMAB-AXXQ
     Dosage: UNK
     Route: 065
     Dates: start: 20220321
  3. METHIMAZOLE [Concomitant]
     Active Substance: METHIMAZOLE
     Dosage: 10 MILLIGRAM, QD
     Dates: start: 202108

REACTIONS (4)
  - Therapeutic product effect decreased [Unknown]
  - Drug specific antibody [Unknown]
  - Maternal exposure during pregnancy [Unknown]
  - Live birth [Unknown]
